FAERS Safety Report 19393475 (Version 1)
Quarter: 2021Q2

REPORT INFORMATION
  Report Type: Spontaneous
  Country: US (occurrence: US)
  Receive Date: 20210609
  Receipt Date: 20210609
  Transmission Date: 20210717
  Serious: Yes (Death, Life-Threatening, Hospitalization, Other)
  Sender: FDA-Public Use
  Company Number: US-DRREDDYS-USA/USA/21/0136416

PATIENT
  Age: 68 Year
  Sex: Female

DRUGS (7)
  1. CALCIUM GLUCONATE. [Concomitant]
     Active Substance: CALCIUM GLUCONATE
     Indication: COVID-19
  2. SODIUM HYDROGEN CARBONATE [Concomitant]
     Active Substance: SODIUM BICARBONATE
     Indication: COVID-19
  3. DEXTROSE. [Concomitant]
     Active Substance: DEXTROSE
     Indication: COVID-19
  4. HEPARIN SODIUM. [Suspect]
     Active Substance: HEPARIN SODIUM
     Indication: ATRIAL THROMBOSIS
  5. HYDROXYCHLOROQUINE SULFATE. [Concomitant]
     Active Substance: HYDROXYCHLOROQUINE SULFATE
     Indication: COVID-19
  6. NOREPINEPHRINE. [Concomitant]
     Active Substance: NOREPINEPHRINE
     Indication: COVID-19
     Route: 042
  7. INSULIN [Concomitant]
     Active Substance: INSULIN NOS
     Indication: COVID-19

REACTIONS (9)
  - Multiple organ dysfunction syndrome [Fatal]
  - Catheter site haemorrhage [Unknown]
  - Haematemesis [Fatal]
  - Coagulopathy [Fatal]
  - Shock [Fatal]
  - Haemorrhage [Fatal]
  - Thrombocytopenia [Unknown]
  - Lactic acidosis [Fatal]
  - Condition aggravated [Fatal]
